FAERS Safety Report 9213037 (Version 2)
Quarter: 2013Q3

REPORT INFORMATION
  Report Type: Report from Study
  Country: JP (occurrence: JP)
  Receive Date: 20130405
  Receipt Date: 20130710
  Transmission Date: 20140515
  Serious: Yes (Hospitalization, Other)
  Sender: FDA-Public Use
  Company Number: JP-GENZYME-THYM-1003726

PATIENT
  Age: 29 Year
  Sex: Male
  Weight: 58 kg

DRUGS (37)
  1. THYMOGLOBULIN [Suspect]
     Indication: BONE MARROW CONDITIONING REGIMEN
     Dosage: 150 MG, QD
     Route: 065
     Dates: start: 20120401, end: 20120402
  2. CICLOSPORIN [Suspect]
     Indication: PROPHYLAXIS AGAINST GRAFT VERSUS HOST DISEASE
     Dosage: UNK
     Route: 065
     Dates: start: 20120404, end: 20120612
  3. CICLOSPORIN [Suspect]
     Indication: GRAFT VERSUS HOST DISEASE
     Dosage: UNK
     Route: 065
     Dates: start: 20120613
  4. PREDNISOLONE [Suspect]
     Indication: ACUTE GRAFT VERSUS HOST DISEASE
     Dosage: UNK
     Route: 065
     Dates: start: 20120419, end: 20120723
  5. METHYLPREDNISOLONE SODIUM SUCCINATE [Concomitant]
     Indication: PREMEDICATION
     Dosage: UNK
     Route: 065
     Dates: start: 20120401, end: 20120402
  6. ACICLOVIR [Concomitant]
     Indication: INFECTION PROPHYLAXIS
     Dosage: UNK
     Route: 065
     Dates: start: 20120401, end: 20120514
  7. ACICLOVIR [Concomitant]
     Dosage: UNK
     Route: 065
     Dates: start: 20120515
  8. PRODIF [Concomitant]
     Indication: INFECTION PROPHYLAXIS
     Dosage: UNK
     Route: 065
     Dates: start: 20120401, end: 20120520
  9. OMEPRAZOLE [Concomitant]
     Indication: PROPHYLAXIS AGAINST GASTROINTESTINAL ULCER
     Dosage: UNK
     Route: 065
     Dates: start: 20120401, end: 20120424
  10. CEFEPIME HYDROCHLORIDE [Concomitant]
     Indication: INFECTION PROPHYLAXIS
     Dosage: UNK
     Route: 065
     Dates: start: 20120401, end: 20120406
  11. HYDROCORTISONE SODIUM PHOSPHATE [Concomitant]
     Indication: PREMEDICATION
     Dosage: UNK
     Route: 065
     Dates: start: 20120401, end: 20120402
  12. GRANISETRON HYDROCHLORIDE [Concomitant]
     Indication: PROPHYLAXIS OF NAUSEA AND VOMITING
     Dosage: UNK
     Route: 065
     Dates: start: 20120402, end: 20120404
  13. METHOTREXATE [Concomitant]
     Indication: PROPHYLAXIS AGAINST GRAFT VERSUS HOST DISEASE
     Dosage: UNK
     Route: 065
     Dates: start: 20120406, end: 20120406
  14. METHOTREXATE [Concomitant]
     Dosage: UNK
     Route: 065
     Dates: start: 20120408, end: 20120408
  15. METHOTREXATE [Concomitant]
     Dosage: UNK
     Route: 065
     Dates: start: 20120411, end: 20120411
  16. METHOTREXATE [Concomitant]
     Dosage: UNK
     Route: 065
     Dates: start: 20120416, end: 20120417
  17. HUMAN HAPTOGLOBIN [Concomitant]
     Indication: PROPHYLAXIS
     Dosage: UNK
     Route: 065
     Dates: start: 20120405, end: 20120405
  18. CALCIUM FOLINATE [Concomitant]
     Indication: PROPHYLAXIS
     Dosage: UNK
     Route: 065
     Dates: start: 20120407, end: 20120407
  19. CALCIUM FOLINATE [Concomitant]
     Dosage: UNK
     Route: 065
     Dates: start: 20120409, end: 20120409
  20. CALCIUM FOLINATE [Concomitant]
     Dosage: UNK
     Route: 065
     Dates: start: 20120412, end: 20120412
  21. NORMAL HUMAN IMMUNOGLOBULIN [Concomitant]
     Indication: INFECTION PROPHYLAXIS
     Dosage: UNK
     Route: 065
     Dates: start: 20120412, end: 20120413
  22. NORMAL HUMAN IMMUNOGLOBULIN [Concomitant]
     Dosage: UNK
     Route: 065
     Dates: start: 20120426, end: 20120427
  23. NORMAL HUMAN IMMUNOGLOBULIN [Concomitant]
     Dosage: UNK
     Route: 065
     Dates: start: 20120506, end: 20120507
  24. NORMAL HUMAN IMMUNOGLOBULIN [Concomitant]
     Dosage: UNK
     Route: 065
     Dates: start: 20120510, end: 20120511
  25. NORMAL HUMAN IMMUNOGLOBULIN [Concomitant]
     Dosage: UNK
     Route: 065
     Dates: start: 20120705, end: 20120706
  26. METHOTREXATE [Concomitant]
     Indication: PRODUCT USED FOR UNKNOWN INDICATION
     Dosage: UNK
     Route: 037
     Dates: start: 20120717, end: 20120717
  27. METHOTREXATE [Concomitant]
     Dosage: UNK
     Route: 037
     Dates: start: 20120724, end: 20120724
  28. FILGRASTIM [Concomitant]
     Indication: NEUTROPHIL COUNT DECREASED
     Dosage: UNK
     Route: 065
     Dates: start: 20120727, end: 20120727
  29. FILGRASTIM [Concomitant]
     Dosage: UNK
     Route: 065
     Dates: start: 20120730, end: 20120730
  30. FILGRASTIM [Concomitant]
     Dosage: UNK
     Route: 065
     Dates: start: 20120803, end: 20120803
  31. SULFAMETHOPRIM [Concomitant]
     Indication: INFECTION PROPHYLAXIS
     Dosage: UNK
     Route: 065
     Dates: start: 20120403, end: 20120403
  32. SULFAMETHOPRIM [Concomitant]
     Dosage: UNK
     Route: 065
     Dates: start: 20120501
  33. URSODEOXYCHOLIC ACID [Concomitant]
     Indication: PROPHYLAXIS
     Dosage: UNK
     Route: 065
     Dates: start: 20120401
  34. BROTIZOLAM [Concomitant]
     Indication: INSOMNIA
     Dosage: UNK
     Route: 065
     Dates: start: 20120401
  35. LANSOPRAZOLE [Concomitant]
     Indication: PROPHYLAXIS AGAINST GASTROINTESTINAL ULCER
     Dosage: UNK
     Route: 065
     Dates: start: 20120425
  36. FLUCONAZOLE [Concomitant]
     Indication: INFECTION PROPHYLAXIS
     Dosage: UNK
     Route: 065
     Dates: start: 20120521
  37. TOTAL BODY IRRADIATION [Concomitant]
     Indication: BONE MARROW CONDITIONING REGIMEN
     Dosage: UNK
     Route: 065
     Dates: start: 20120404, end: 20120406

REACTIONS (11)
  - Obliterative bronchiolitis [Not Recovered/Not Resolved]
  - Febrile neutropenia [Recovered/Resolved]
  - Acute graft versus host disease [Not Recovered/Not Resolved]
  - Acute graft versus host disease in skin [Not Recovered/Not Resolved]
  - Chronic graft versus host disease [Unknown]
  - Cytomegalovirus test positive [Recovered/Resolved]
  - Cytomegalovirus test positive [Recovered/Resolved]
  - Conjunctivitis [Recovered/Resolved]
  - Hypertension [Recovered/Resolved]
  - Bronchitis [Recovered/Resolved]
  - Cytomegalovirus test positive [Recovered/Resolved]
